FAERS Safety Report 20062785 (Version 2)
Quarter: 2021Q4

REPORT INFORMATION
  Report Type: Spontaneous
  Country: US (occurrence: US)
  Receive Date: 20211112
  Receipt Date: 20211204
  Transmission Date: 20220303
  Serious: No
  Sender: FDA-Public Use
  Company Number: US-SANOFI-00842992

PATIENT
  Age: 83 Year
  Sex: Male

DRUGS (1)
  1. TOUJEO [Suspect]
     Active Substance: INSULIN GLARGINE
     Dosage: 28 IU, Q12H
     Route: 065

REACTIONS (2)
  - Blood glucose abnormal [Unknown]
  - Inappropriate schedule of product administration [Unknown]
